FAERS Safety Report 4498106-4 (Version None)
Quarter: 2004Q3

REPORT INFORMATION
  Report Type: 
  Country: None (occurrence: None)
  Receive Date: 20040927
  Receipt Date: 20040726
  Transmission Date: 20050211
  Serious: No
  Sender: FDA-Public Use
  Company Number: USA040773602

PATIENT
  Age: 13 Year
  Sex: Male
  Weight: 66 kg

DRUGS (2)
  1. STRATTERA [Suspect]
     Indication: ATTENTION DEFICIT/HYPERACTIVITY DISORDER
     Dosage: 25 MG DAY
     Dates: start: 20040725, end: 20040726
  2. FLUTICASONE PROPIONATE W/SALMETEROL XINAFOATE [Concomitant]

REACTIONS (2)
  - DYSURIA [None]
  - TESTICULAR PAIN [None]
